FAERS Safety Report 7125109-3 (Version None)
Quarter: 2010Q4

REPORT INFORMATION
  Report Type: 
  Country: None (occurrence: None)
  Receive Date: 20101129
  Receipt Date: 20101018
  Transmission Date: 20110411
  Serious: Yes (Other)
  Sender: FDA-Public Use
  Company Number: US-AMGEN INC.-KDL440902

PATIENT

DRUGS (12)
  1. EPOGEN [Suspect]
     Indication: ANAEMIA
     Dosage: 20000 UNIT, 2 TIMES/WK
     Route: 058
     Dates: start: 20100907, end: 20100923
  2. EPOGEN [Suspect]
     Dosage: 10000 UNIT, QWK
     Route: 058
     Dates: start: 20100907, end: 20100923
  3. NEXIUM [Concomitant]
  4. TRAZODONE [Concomitant]
  5. FOLATE [Concomitant]
  6. DEPAKOTE [Concomitant]
  7. WELLBUTRIN XL [Concomitant]
  8. VITAMIN B6 [Concomitant]
  9. VITAMIN B12                        /00056201/ [Concomitant]
  10. FOLIC ACID [Concomitant]
  11. CLONAZEPAM [Concomitant]
  12. MULTIVITAMIN                       /00097801/ [Concomitant]

REACTIONS (4)
  - ADVERSE DRUG REACTION [None]
  - DIARRHOEA [None]
  - FATIGUE [None]
  - GASTROINTESTINAL PAIN [None]
